FAERS Safety Report 5403215-9 (Version None)
Quarter: 2007Q3

REPORT INFORMATION
  Report Type: 
  Country: None (occurrence: None)
  Receive Date: 20070801
  Receipt Date: 20070723
  Transmission Date: 20080115
  Serious: Yes (Other)
  Sender: FDA-Public Use
  Company Number: JP-PFIZER INC-2007057981

PATIENT
  Sex: Male
  Weight: 55 kg

DRUGS (9)
  1. SOLU-MEDROL [Suspect]
     Indication: INTERSTITIAL LUNG DISEASE
     Route: 042
     Dates: start: 20070624, end: 20070626
  2. MYSLEE [Suspect]
     Indication: INSOMNIA
     Route: 048
     Dates: start: 20070624, end: 20070624
  3. UNIPHYL [Concomitant]
     Route: 048
  4. FAMOTIDINE [Concomitant]
     Route: 048
     Dates: start: 20070604
  5. URIEF [Concomitant]
     Route: 048
     Dates: start: 20070613
  6. AMICALIQ [Concomitant]
     Route: 042
     Dates: start: 20070619, end: 20070625
  7. TAXOL [Concomitant]
     Route: 042
  8. PARAPLATIN [Concomitant]
     Route: 042
  9. SOLITA-T3 INJECTION [Concomitant]
     Route: 042
     Dates: start: 20070624, end: 20070626

REACTIONS (2)
  - DELIRIUM [None]
  - SUICIDAL IDEATION [None]
